FAERS Safety Report 5360262-3 (Version None)
Quarter: 2007Q2

REPORT INFORMATION
  Report Type: 
  Country: None (occurrence: None)
  Receive Date: 20070618
  Receipt Date: 20070606
  Transmission Date: 20071010
  Serious: Yes (Other)
  Sender: FDA-Public Use
  Company Number: DE-JNJFOC-20070204100

PATIENT

DRUGS (1)
  1. INFLIXIMAB [Suspect]
     Indication: INFLAMMATION
     Dosage: 11TH INFUSION
     Route: 042

REACTIONS (2)
  - CARDIOVASCULAR INSUFFICIENCY [None]
  - INFUSION RELATED REACTION [None]
